FAERS Safety Report 8521829-4 (Version None)
Quarter: 2012Q3

REPORT INFORMATION
  Report Type: 
  Country: None (occurrence: None)
  Receive Date: 20120719
  Receipt Date: 20120518
  Transmission Date: 20120928
  Serious: Yes (Other)
  Sender: FDA-Public Use
  Company Number: US-BRISTOL-MYERS SQUIBB COMPANY-16526667

PATIENT
  Age: 55 Year
  Sex: Male

DRUGS (1)
  1. YERVOY [Suspect]
     Dosage: LAST INFU: 17MAY12. NO OF INF:3
     Dates: start: 20120405

REACTIONS (3)
  - LYMPHADENOPATHY [None]
  - RASH [None]
  - SWOLLEN TONGUE [None]
